FAERS Safety Report 21498982 (Version 1)
Quarter: 2022Q4

REPORT INFORMATION
  Report Type: Spontaneous
  Country: US (occurrence: US)
  Receive Date: 20221024
  Receipt Date: 20221024
  Transmission Date: 20230113
  Serious: No
  Sender: FDA-Public Use
  Company Number: US-BAUSCH-BL-2022-023678

PATIENT
  Age: 29 Year
  Sex: Female

DRUGS (1)
  1. RELISTOR [Suspect]
     Active Substance: METHYLNALTREXONE BROMIDE
     Indication: Constipation
     Dosage: SINGLE
     Route: 042
     Dates: start: 20221014

REACTIONS (2)
  - Dizziness [Unknown]
  - Incorrect route of product administration [Unknown]
